FAERS Safety Report 4646029-X (Version None)
Quarter: 2005Q2

REPORT INFORMATION
  Report Type: 
  Country: None (occurrence: None)
  Receive Date: 20050422
  Receipt Date: 20050422
  Transmission Date: 20051028
  Serious: Yes (Life-Threatening, Hospitalization)
  Sender: FDA-Public Use
  Company Number: None

PATIENT
  Age: 51 Year
  Sex: Female
  Weight: 98 kg

DRUGS (10)
  1. DEPAKOTE [Suspect]
     Indication: BIPOLAR DISORDER
     Dosage: 500 MG   TID   ORAL
     Route: 048
     Dates: start: 20040102, end: 20050414
  2. DEPAKOTE [Suspect]
     Indication: PANIC ATTACK
     Dosage: 500 MG   TID   ORAL
     Route: 048
     Dates: start: 20040102, end: 20050414
  3. GEODON [Concomitant]
  4. COGENTIN [Concomitant]
  5. DETROL LA [Concomitant]
  6. PROMETIUM [Concomitant]
  7. NABUMETONE [Concomitant]
  8. TRAZADONE [Concomitant]
  9. VICODIN [Concomitant]
  10. RESTORIL [Concomitant]

REACTIONS (8)
  - FATIGUE [None]
  - FIBROMYALGIA [None]
  - HEPATITIS [None]
  - HYPOXIA [None]
  - LUPUS-LIKE SYNDROME [None]
  - PERICARDITIS [None]
  - PNEUMONITIS [None]
  - PYREXIA [None]
